FAERS Safety Report 8610440-2 (Version None)
Quarter: 2012Q3

REPORT INFORMATION
  Report Type: 
  Country: None (occurrence: None)
  Receive Date: 20120822
  Receipt Date: 20120817
  Transmission Date: 20120928
  Serious: No
  Sender: FDA-Public Use
  Company Number: US-PFIZER INC-2012202477

PATIENT
  Sex: Female

DRUGS (3)
  1. VISTARIL [Suspect]
     Indication: ALLERGY TO ANIMAL
     Dosage: 25 MG, 2X/DAY
  2. DILANTIN [Concomitant]
     Indication: EPILEPSY
     Dosage: UNK
     Dates: start: 19930101
  3. VISTARIL [Suspect]
     Dosage: 50 MG, 1X/DAY

REACTIONS (6)
  - FATIGUE [None]
  - SOMNOLENCE [None]
  - DRUG DISPENSING ERROR [None]
  - FEELING ABNORMAL [None]
  - DRUG INTOLERANCE [None]
  - INCORRECT DRUG DOSAGE FORM ADMINISTERED [None]
